FAERS Safety Report 19847469 (Version 2)
Quarter: 2021Q3

REPORT INFORMATION
  Report Type: Spontaneous
  Country: US (occurrence: US)
  Receive Date: 20210917
  Receipt Date: 20210920
  Transmission Date: 20211014
  Serious: No
  Sender: FDA-Public Use
  Company Number: US-PFIZER INC-2021751011

PATIENT
  Age: 83 Year
  Sex: Female
  Weight: 71.67 kg

DRUGS (3)
  1. TIKOSYN [Suspect]
     Active Substance: DOFETILIDE
     Dosage: 125 UG, 2X/DAY
     Route: 048
  2. TIKOSYN [Suspect]
     Active Substance: DOFETILIDE
     Dosage: 2X/DAY (250MG, CAPSULE, BY MOUTH, TWICE DAILY; 150MG, CAPSULE, BY MOUTH, TWICE DAILY
     Route: 048
     Dates: start: 2017
  3. TIKOSYN [Suspect]
     Active Substance: DOFETILIDE
     Dosage: 250 UG 2XDAY
     Route: 048

REACTIONS (2)
  - Neuralgia [Unknown]
  - Sciatica [Unknown]

NARRATIVE: CASE EVENT DATE: 202011
